FAERS Safety Report 15197007 (Version 4)
Quarter: 2021Q2

REPORT INFORMATION
  Report Type: Report from Study
  Country: GB (occurrence: GB)
  Receive Date: 20180725
  Receipt Date: 20210517
  Transmission Date: 20210716
  Serious: Yes (Other)
  Sender: FDA-Public Use
  Company Number: GB-JNJFOC-20180730139

PATIENT
  Age: 4 Year
  Sex: Female

DRUGS (5)
  1. BISACODYL. [Concomitant]
     Active Substance: BISACODYL
     Route: 054
  2. ABIDEC [Concomitant]
     Active Substance: VITAMINS
     Route: 065
  3. COLECALCIFEROL [Concomitant]
     Active Substance: CHOLECALCIFEROL
     Route: 065
  4. HUMAN CLOTTABLE PROTEIN/HUMAN THROMBIN [Suspect]
     Active Substance: FIBRINOGEN HUMAN\THROMBIN HUMAN
     Indication: HAEMOSTASIS
     Route: 061
     Dates: start: 20180705, end: 20180705
  5. ERYTHROMYCIN. [Concomitant]
     Active Substance: ERYTHROMYCIN
     Route: 065

REACTIONS (1)
  - Brain injury [Recovered/Resolved]

NARRATIVE: CASE EVENT DATE: 20180705
